FAERS Safety Report 5580718-8 (Version None)
Quarter: 2007Q4

REPORT INFORMATION
  Report Type: 
  Country: None (occurrence: None)
  Receive Date: 20071130
  Receipt Date: 20070810
  Transmission Date: 20080405
  Serious: No
  Sender: FDA-Public Use
  Company Number: US200707003359

PATIENT
  Age: 71 Year
  Sex: Female

DRUGS (5)
  1. BYETTA [Suspect]
     Indication: TYPE 2 DIABETES MELLITUS
     Dosage: 5 UG, 2/D, SUBCUTANEOUS ; 5 UG, SUBCUTANEOUS ; 10 UG, SUBCUTANEOUS
     Route: 058
     Dates: start: 20070710
  2. BYETTA [Suspect]
     Dosage: 10 UG, SUBCUTANEOUS
     Route: 058
     Dates: start: 20070101
  3. ACTOS [Concomitant]
  4. GLIMEPIRIDE [Concomitant]
  5. DRUG USED IN DIABETES [Concomitant]

REACTIONS (6)
  - BLOOD GLUCOSE DECREASED [None]
  - COLD SWEAT [None]
  - DIARRHOEA [None]
  - FEELING COLD [None]
  - FEELING JITTERY [None]
  - NAUSEA [None]
